FAERS Safety Report 7356621-X (Version None)
Quarter: 2011Q1

REPORT INFORMATION
  Report Type: 
  Country: None (occurrence: None)
  Receive Date: 20110316
  Receipt Date: 20110310
  Transmission Date: 20110831
  Serious: Yes (Other)
  Sender: FDA-Public Use
  Company Number: US-US-EMD SERONO, INC.-7045533

PATIENT
  Sex: Male

DRUGS (2)
  1. REBIF [Suspect]
     Indication: PRODUCT USED FOR UNKNOWN INDICATION
     Route: 058
     Dates: start: 20110105
  2. UNSPECIFIED ANALGESIC [Concomitant]
     Indication: PREMEDICATION

REACTIONS (5)
  - PNEUMONIA [None]
  - BRONCHIOLITIS [None]
  - INFLUENZA [None]
  - INSOMNIA [None]
  - HYPERHIDROSIS [None]
